FAERS Safety Report 12199887 (Version 1)
Quarter: 2016Q1

REPORT INFORMATION
  Report Type: Spontaneous
  Country: US (occurrence: US)
  Receive Date: 20160322
  Receipt Date: 20160322
  Transmission Date: 20160526
  Serious: Yes (Death)
  Sender: FDA-Public Use
  Company Number: US-PFIZER INC-2016160693

PATIENT
  Age: 67 Year
  Sex: Male

DRUGS (4)
  1. PHENYTOIN. [Suspect]
     Active Substance: PHENYTOIN
     Indication: TOXICITY TO VARIOUS AGENTS
     Dosage: 250 MG, UNK (TOTAL), (RATE OF PHENYTOIN INFUSION 50MG/DL)
     Route: 042
     Dates: start: 19680316
  2. DIGOXIN. [Concomitant]
     Active Substance: DIGOXIN
     Indication: CARDIAC FAILURE
     Dosage: 0.25 MG, DAILY
     Route: 048
     Dates: start: 1963
  3. MERALLURIDE [Concomitant]
     Dosage: 2 ML, UNK (INJECTED ON THE FIRST,THIRD, AND FOURTH DAY)
     Dates: start: 196803
  4. ETHACRYNIC ACID [Concomitant]
     Active Substance: ETHACRYNIC ACID
     Dosage: 50 MG, UNK (ON SECOND AND SIXTH DAY)
     Route: 048
     Dates: start: 196803

REACTIONS (3)
  - Toxic neuropathy [Fatal]
  - Opisthotonus [Fatal]
  - Apnoea [Fatal]

NARRATIVE: CASE EVENT DATE: 196803
